FAERS Safety Report 7380310-9 (Version None)
Quarter: 2011Q1

REPORT INFORMATION
  Report Type: 
  Country: None (occurrence: None)
  Receive Date: 20110324
  Receipt Date: 20110324
  Transmission Date: 20110831
  Serious: No
  Sender: FDA-Public Use
  Company Number: None

PATIENT
  Age: 36 Year
  Sex: Female
  Weight: 74.8435 kg

DRUGS (1)
  1. LEVAQUIN [Suspect]
     Indication: URINARY TRACT INFECTION
     Dates: start: 20080815, end: 20080825

REACTIONS (6)
  - MOOD SWINGS [None]
  - DEPRESSION [None]
  - FATIGUE [None]
  - JOINT SWELLING [None]
  - WEIGHT INCREASED [None]
  - ARTHRALGIA [None]
